FAERS Safety Report 11892538 (Version 2)
Quarter: 2016Q1

REPORT INFORMATION
  Report Type: Spontaneous
  Country: US (occurrence: US)
  Receive Date: 20160106
  Receipt Date: 20160205
  Transmission Date: 20160526
  Serious: No
  Sender: FDA-Public Use
  Company Number: US-JNJFOC-20151223112

PATIENT
  Sex: Female

DRUGS (1)
  1. PARAFON FORTE [Suspect]
     Active Substance: CHLORZOXAZONE
     Indication: SCIATICA
     Route: 048

REACTIONS (1)
  - Drug dose omission [Unknown]

NARRATIVE: CASE EVENT DATE: 201508
